FAERS Safety Report 21494681 (Version 1)
Quarter: 2022Q4

REPORT INFORMATION
  Report Type: Report from Study
  Country: US (occurrence: US)
  Receive Date: 20221021
  Receipt Date: 20221021
  Transmission Date: 20230113
  Serious: Yes (Other)
  Sender: FDA-Public Use
  Company Number: US-SEATTLE GENETICS-2022SGN09659

PATIENT
  Age: 35 Year
  Sex: Female

DRUGS (18)
  1. TUCATINIB [Suspect]
     Active Substance: TUCATINIB
     Indication: Triple positive breast cancer
     Dosage: 300 MG, Q12H
     Route: 048
     Dates: start: 20210123
  2. CAPECITABINE [Suspect]
     Active Substance: CAPECITABINE
     Indication: Triple positive breast cancer
     Dosage: UNK
     Route: 048
     Dates: start: 20210121, end: 202106
  3. TRASTUZUMAB [Suspect]
     Active Substance: TRASTUZUMAB
     Indication: Triple positive breast cancer
     Dosage: 8 MG/KG
     Route: 042
     Dates: start: 20210107
  4. KEPPRA [Suspect]
     Active Substance: LEVETIRACETAM
     Indication: Product used for unknown indication
     Route: 065
  5. TYLENOL [Suspect]
     Active Substance: ACETAMINOPHEN
     Indication: Product used for unknown indication
     Route: 065
  6. OSCAL [Concomitant]
     Active Substance: CALCIUM CARBONATE
     Dosage: 600 MG, BID
     Route: 048
     Dates: start: 20220303
  7. VITAMIN B12 [Concomitant]
     Active Substance: CYANOCOBALAMIN
     Dosage: 1000 ?G
     Route: 030
  8. DDAVP [Concomitant]
     Active Substance: DESMOPRESSIN ACETATE
     Dosage: 10 ?G, BID (ONE SPRAY BID, ALTERNATING NARES)
     Route: 045
     Dates: start: 20210514
  9. TRICOR [Concomitant]
     Active Substance: FENOFIBRATE
     Dosage: 48 MG, QD
     Route: 048
     Dates: start: 20220812
  10. CORTEF [Concomitant]
     Active Substance: HYDROCORTISONE
     Dosage: 20 MG, QAM
     Route: 048
     Dates: start: 20220506
  11. ATROVENT [Concomitant]
     Active Substance: IPRATROPIUM BROMIDE
     Dosage: 42 ?G, QD (EACH NOSTRIL)
     Route: 045
     Dates: start: 20220419
  12. FEMARA [Concomitant]
     Active Substance: LETROZOLE
     Indication: Triple positive breast cancer
     Dosage: 2.5 MG, QAM
     Route: 048
     Dates: start: 20151021
  13. SYNTHROID [Concomitant]
     Active Substance: LEVOTHYROXINE SODIUM
     Dosage: 100 ?G, QAM
     Route: 048
     Dates: start: 20220513
  14. IMODIUM A-D [Concomitant]
     Active Substance: LOPERAMIDE HYDROCHLORIDE
     Dosage: 2 MG
     Route: 048
     Dates: start: 20210128
  15. ATIVAN [Concomitant]
     Active Substance: LORAZEPAM
     Dosage: 0.5 MG, QHS, PRN
     Route: 048
     Dates: start: 20220809
  16. KLOR-CON [Concomitant]
     Active Substance: POTASSIUM CHLORIDE
     Dosage: 20 MEQ, BID
     Route: 048
  17. FULVESTRANT [Concomitant]
     Active Substance: FULVESTRANT
     Indication: Triple positive breast cancer
     Dosage: 500 MG, Q3WEEKS
     Route: 030
     Dates: start: 20151021
  18. XGEVA [Concomitant]
     Active Substance: DENOSUMAB
     Indication: Triple positive breast cancer
     Dosage: 120 MG, Q6WK
     Route: 058
     Dates: start: 20151021

REACTIONS (6)
  - Malignant neoplasm progression [Not Recovered/Not Resolved]
  - Renal failure [Recovering/Resolving]
  - Fatigue [Unknown]
  - Aspartate aminotransferase increased [Recovered/Resolved]
  - Alanine aminotransferase increased [Recovered/Resolved]
  - Diarrhoea [Unknown]

NARRATIVE: CASE EVENT DATE: 20211206
